FAERS Safety Report 7509356-4 (Version None)
Quarter: 2011Q2

REPORT INFORMATION
  Report Type: 
  Country: None (occurrence: None)
  Receive Date: 20110527
  Receipt Date: 20110523
  Transmission Date: 20111010
  Serious: Yes (Life-Threatening, Hospitalization)
  Sender: FDA-Public Use
  Company Number: PHHY2010DE50642

PATIENT
  Sex: Female

DRUGS (7)
  1. RAMIPRIL [Concomitant]
     Indication: HYPERTENSION
     Dosage: 5 MG, QD
     Route: 048
  2. LEVOTHYROXINE SODIUM [Concomitant]
     Indication: HYPOTHYROIDISM
     Dosage: 100 UG, UNK
     Route: 048
  3. METOPROLOL SUCCINATE [Concomitant]
     Indication: HYPERTENSION
     Dosage: 100 MG, QD
     Route: 048
  4. VOLTAREN [Suspect]
     Indication: PAIN
     Dosage: 1 DF, QD
     Route: 048
     Dates: start: 20100601, end: 20100708
  5. ACETYLSALICYLIC ACID SRT [Concomitant]
     Dosage: 100 MG, QD
     Route: 048
  6. HYDROCHLOROTHIAZIDE W/RAMIPRIL [Concomitant]
     Indication: HYPERTENSION
     Dosage: UNK OT, UNK
     Route: 048
  7. SIMVASTATIN [Concomitant]
     Indication: HYPERLIPIDAEMIA
     Dosage: 20 MG, QD
     Route: 048

REACTIONS (6)
  - MUCOSAL INFLAMMATION [None]
  - ULCER [None]
  - AGRANULOCYTOSIS [None]
  - BACTERIAL INFECTION [None]
  - SEPSIS [None]
  - OVERDOSE [None]
